FAERS Safety Report 5021809-X (Version None)
Quarter: 2006Q2

REPORT INFORMATION
  Report Type: 
  Country: None (occurrence: None)
  Receive Date: 20060605
  Receipt Date: 20060517
  Transmission Date: 20061013
  Serious: Yes (Hospitalization)
  Sender: FDA-Public Use
  Company Number: US200605005277

PATIENT
  Sex: Male
  Weight: 89.8 kg

DRUGS (8)
  1. ZYPREXA [Suspect]
     Dosage: 20 MG
     Dates: start: 20010601, end: 20050630
  2. ASA (ASPIRIN ACETYLSALICYLIC ACID) [Concomitant]
  3. LEXAPRO /USA/ (ESCITALOPRAM) [Concomitant]
  4. DOCUSATE [Concomitant]
  5. ZOLOFT [Concomitant]
  6. IBUPROFEN [Concomitant]
  7. AMBIEN [Concomitant]
  8. GABAPENTIN [Concomitant]

REACTIONS (6)
  - DIABETES MELLITUS [None]
  - DIABETIC COMA [None]
  - FOOT AMPUTATION [None]
  - HYPERTENSION [None]
  - TOE AMPUTATION [None]
  - VISION BLURRED [None]
